FAERS Safety Report 23822417 (Version 1)
Quarter: 2024Q2

REPORT INFORMATION
  Report Type: Spontaneous
  Country: US (occurrence: US)
  Receive Date: 20240506
  Receipt Date: 20240506
  Transmission Date: 20240716
  Serious: No
  Sender: FDA-Public Use
  Company Number: US-AMGEN-USASP2024084962

PATIENT

DRUGS (2)
  1. MVASI [Suspect]
     Active Substance: BEVACIZUMAB-AWWB
     Indication: Product used for unknown indication
     Dosage: 500 MILLIGRAM ( 100 MG VIAL)
     Route: 065
  2. MVASI [Suspect]
     Active Substance: BEVACIZUMAB-AWWB
     Dosage: 500 MILLIGRAM ( 400 MG VIAL)
     Route: 065

REACTIONS (2)
  - Intercepted product preparation error [Unknown]
  - Intercepted product selection error [Unknown]

NARRATIVE: CASE EVENT DATE: 20240417
